FAERS Safety Report 9515292 (Version 1)
Quarter: 2013Q3

REPORT INFORMATION
  Report Type: Spontaneous
  Country: US (occurrence: US)
  Receive Date: 20130911
  Receipt Date: 20130911
  Transmission Date: 20140515
  Serious: No
  Sender: FDA-Public Use
  Company Number: US-JNJFOC-20130903049

PATIENT
  Age: 44 Year
  Sex: Female
  Weight: 81.65 kg

DRUGS (3)
  1. DURAGESIC [Suspect]
     Indication: PAIN
     Route: 062
     Dates: start: 2013
  2. PERCOCET [Concomitant]
     Indication: PAIN
     Route: 065
     Dates: start: 2012
  3. ZANAFLEX [Concomitant]
     Indication: MUSCLE RELAXANT THERAPY
     Route: 065
     Dates: start: 2012

REACTIONS (2)
  - Incorrect drug administration duration [Recovered/Resolved]
  - Product packaging quantity issue [Unknown]
